FAERS Safety Report 17919283 (Version 8)
Quarter: 2022Q2

REPORT INFORMATION
  Report Type: Report from Study
  Country: US (occurrence: US)
  Receive Date: 20200619
  Receipt Date: 20220516
  Transmission Date: 20220721
  Serious: No
  Sender: FDA-Public Use
  Company Number: NVSC2020US172279

PATIENT
  Sex: Female

DRUGS (2)
  1. COSENTYX [Suspect]
     Active Substance: SECUKINUMAB
     Indication: Psoriasis
     Dosage: UNK
     Route: 058
     Dates: start: 20161115
  2. COSENTYX [Suspect]
     Active Substance: SECUKINUMAB
     Indication: Psoriatic arthropathy

REACTIONS (10)
  - Weight decreased [Unknown]
  - Nerve injury [Unknown]
  - Food poisoning [Unknown]
  - Abdominal discomfort [Unknown]
  - Pain in extremity [Unknown]
  - Joint dislocation [Unknown]
  - Finger deformity [Unknown]
  - Arthralgia [Unknown]
  - Injection site pain [Unknown]
  - Back pain [Unknown]
